FAERS Safety Report 8575533-7 (Version None)
Quarter: 2012Q3

REPORT INFORMATION
  Report Type: 
  Country: None (occurrence: None)
  Receive Date: 20120807
  Receipt Date: 20120802
  Transmission Date: 20120928
  Serious: Yes (Other)
  Sender: FDA-Public Use
  Company Number: PHFR2012IE004279

PATIENT
  Sex: Female

DRUGS (1)
  1. CLOZARIL [Suspect]
     Indication: SCHIZOPHRENIA
     Route: 048
     Dates: start: 20110705

REACTIONS (3)
  - NEUTROPHIL COUNT DECREASED [None]
  - KIDNEY INFECTION [None]
  - EOSINOPHIL COUNT ABNORMAL [None]
